FAERS Safety Report 25537846 (Version 3)
Quarter: 2025Q3

REPORT INFORMATION
  Report Type: Report from Study
  Country: US (occurrence: US)
  Receive Date: 20250710
  Receipt Date: 20250818
  Transmission Date: 20251020
  Serious: No
  Sender: SUNOVION
  Company Number: US-SMPA-2025SPA008367AA

PATIENT
  Age: 64 Year
  Sex: Male

DRUGS (3)
  1. ORGOVYX [Suspect]
     Active Substance: RELUGOLIX
     Indication: Prostate cancer
     Route: 048
  2. ORGOVYX [Suspect]
     Active Substance: RELUGOLIX
     Route: 048
  3. MINERALS [Suspect]
     Active Substance: MINERALS
     Indication: Product used for unknown indication

REACTIONS (4)
  - Pruritus [Recovered/Resolved]
  - Dry skin [Unknown]
  - Scar [Unknown]
  - Rash [Unknown]
